FAERS Safety Report 7509135-8 (Version None)
Quarter: 2011Q2

REPORT INFORMATION
  Report Type: 
  Country: None (occurrence: None)
  Receive Date: 20110527
  Receipt Date: 20110517
  Transmission Date: 20111010
  Serious: Yes (Hospitalization)
  Sender: FDA-Public Use
  Company Number: JP-JNJFOC-20110411518

PATIENT
  Age: 83 Year
  Sex: Female

DRUGS (15)
  1. GALANTAMINE HYDROBROMIDE [Suspect]
     Indication: DEMENTIA ALZHEIMER'S TYPE
     Route: 048
     Dates: start: 20110407, end: 20110420
  2. NICORANTA [Concomitant]
     Route: 048
  3. ACTOS [Concomitant]
     Route: 048
  4. FAMOTIDINE [Concomitant]
     Route: 048
  5. NICERGOLINE [Concomitant]
     Route: 048
  6. ISOSORBIDE DINITRATE [Concomitant]
     Route: 048
  7. DEPAS [Concomitant]
     Route: 048
  8. BLADDERON [Concomitant]
     Route: 048
  9. MEBUTIT [Concomitant]
     Route: 048
  10. BIOFERMIN [Concomitant]
     Route: 048
  11. MACTASE-S [Concomitant]
     Route: 048
  12. MAGNESIUM OXIDE [Concomitant]
     Route: 048
  13. ASPIRIN [Concomitant]
     Route: 048
  14. EPADEL [Concomitant]
     Route: 048
  15. PROPIVERINE HYDROCHLORIDE [Concomitant]
     Route: 048

REACTIONS (4)
  - PARALYSIS [None]
  - PLATELET COUNT DECREASED [None]
  - INFLUENZA [None]
  - CEREBROVASCULAR ACCIDENT [None]
